FAERS Safety Report 4480162-0 (Version None)
Quarter: 2004Q4

REPORT INFORMATION
  Report Type: 
  Country: None (occurrence: None)
  Receive Date: 20041020
  Receipt Date: 20030605
  Transmission Date: 20050328
  Serious: Yes (Hospitalization, Disabling)
  Sender: FDA-Public Use
  Company Number: US-MERCK-0306USA00840

PATIENT
  Age: 59 Year
  Sex: Female

DRUGS (6)
  1. VIOXX [Suspect]
     Indication: ARTHRITIS
     Route: 048
  2. PREMARIN [Concomitant]
     Route: 065
     Dates: start: 19810101
  3. NEURONTIN [Concomitant]
     Route: 065
  4. VICODIN [Concomitant]
     Indication: ARTHRALGIA
     Route: 065
  5. VICODIN [Concomitant]
     Route: 065
  6. HYDRODIURIL [Concomitant]
     Route: 048

REACTIONS (12)
  - ABDOMINAL PAIN [None]
  - ADVERSE EVENT [None]
  - CHEST PAIN [None]
  - CONSTIPATION [None]
  - DIARRHOEA [None]
  - GASTRITIS [None]
  - GASTROOESOPHAGEAL REFLUX DISEASE [None]
  - HYPERTENSION [None]
  - MUSCULAR WEAKNESS [None]
  - MYALGIA [None]
  - NOCTURIA [None]
  - RECTAL HAEMORRHAGE [None]
